FAERS Safety Report 25041212 (Version 2)
Quarter: 2025Q1

REPORT INFORMATION
  Report Type: Spontaneous
  Country: US (occurrence: US)
  Receive Date: 20250305
  Receipt Date: 20250319
  Transmission Date: 20250409
  Serious: Yes (Death, Other)
  Sender: RANBAXY
  Company Number: US-SUN PHARMACEUTICAL INDUSTRIES LTD-2025R1-498103

PATIENT
  Sex: Male

DRUGS (10)
  1. ILUMYA [Suspect]
     Active Substance: TILDRAKIZUMAB-ASMN
     Indication: Psoriasis
     Route: 065
     Dates: start: 20240311
  2. ILUMYA [Suspect]
     Active Substance: TILDRAKIZUMAB-ASMN
     Route: 065
     Dates: start: 20240410
  3. ILUMYA [Suspect]
     Active Substance: TILDRAKIZUMAB-ASMN
     Route: 065
     Dates: start: 20240627
  4. ILUMYA [Suspect]
     Active Substance: TILDRAKIZUMAB-ASMN
     Route: 065
     Dates: start: 20240920
  5. ILUMYA [Suspect]
     Active Substance: TILDRAKIZUMAB-ASMN
     Route: 065
     Dates: start: 20241218
  6. LEVEMIR [Concomitant]
     Active Substance: INSULIN DETEMIR
     Indication: Product used for unknown indication
     Route: 065
  7. SIMVASTATIN [Concomitant]
     Active Substance: SIMVASTATIN
     Indication: Product used for unknown indication
     Route: 065
  8. METFORMIN [Concomitant]
     Active Substance: METFORMIN HYDROCHLORIDE
     Indication: Product used for unknown indication
     Route: 065
  9. LISINOPRIL [Concomitant]
     Active Substance: LISINOPRIL
     Indication: Product used for unknown indication
     Route: 065
  10. TRELEGY ELLIPTA [Concomitant]
     Active Substance: FLUTICASONE FUROATE\UMECLIDINIUM BROMIDE\VILANTEROL TRIFENATATE
     Indication: Product used for unknown indication
     Route: 065

REACTIONS (1)
  - Death [Fatal]
